FAERS Safety Report 17366436 (Version 1)
Quarter: 2020Q1

REPORT INFORMATION
  Report Type: Spontaneous
  Country: JP (occurrence: JP)
  Receive Date: 20200204
  Receipt Date: 20200204
  Transmission Date: 20200409
  Serious: Yes (Other)
  Sender: FDA-Public Use
  Company Number: JP-SHIRE-JP202004107

PATIENT

DRUGS (1)
  1. LIALDA [Suspect]
     Active Substance: MESALAMINE
     Indication: COLITIS ULCERATIVE
     Dosage: 3600 MILLIGRAM, 1X/DAY:QD
     Route: 048

REACTIONS (3)
  - Malaise [Unknown]
  - Abdominal pain [Unknown]
  - Haemorrhage [Unknown]
